FAERS Safety Report 8143466-6 (Version None)
Quarter: 2012Q1

REPORT INFORMATION
  Report Type: 
  Country: None (occurrence: None)
  Receive Date: 20120217
  Receipt Date: 20120216
  Transmission Date: 20120608
  Serious: Yes (Other)
  Sender: FDA-Public Use
  Company Number: US-JNJFOC-20120113052

PATIENT
  Sex: Female
  Weight: 77.11 kg

DRUGS (8)
  1. DOXORUBICIN HCL [Suspect]
     Route: 042
     Dates: start: 20110411
  2. DOXORUBICIN HCL [Suspect]
     Route: 042
     Dates: start: 20110913
  3. DOXORUBICIN HCL [Suspect]
     Route: 042
     Dates: start: 20110509
  4. DOXORUBICIN HCL [Suspect]
     Indication: FALLOPIAN TUBE CANCER
     Route: 042
     Dates: start: 20110816
  5. DOXORUBICIN HCL [Suspect]
     Route: 042
     Dates: start: 20110314
  6. DOXORUBICIN HCL [Suspect]
     Route: 042
     Dates: start: 20111011
  7. DOXORUBICIN HCL [Suspect]
     Route: 042
     Dates: start: 20110314, end: 20111101
  8. DOXORUBICIN HCL [Suspect]
     Route: 042
     Dates: start: 20110606

REACTIONS (1)
  - FALLOPIAN TUBE CANCER [None]
